FAERS Safety Report 4915092-0 (Version None)
Quarter: 2006Q1

REPORT INFORMATION
  Report Type: 
  Country: None (occurrence: None)
  Receive Date: 20060215
  Receipt Date: 20060215
  Transmission Date: 20060701
  Serious: Yes (Hospitalization)
  Sender: FDA-Public Use
  Company Number: None

PATIENT
  Age: 59 Year
  Sex: Male

DRUGS (1)
  1. ROSUVASTATIN 10MG ASTRAZENECA [Suspect]
     Indication: HYPERCHOLESTEROLAEMIA
     Dosage: 10MG HS PO
     Route: 048

REACTIONS (12)
  - AGITATION [None]
  - CONFUSIONAL STATE [None]
  - CONVULSION [None]
  - HAEMODIALYSIS [None]
  - HYPERTENSION [None]
  - HYPOMAGNESAEMIA [None]
  - HYPONATRAEMIA [None]
  - MENTAL STATUS CHANGES [None]
  - PYREXIA [None]
  - RASH [None]
  - RENAL TUBULAR NECROSIS [None]
  - RHABDOMYOLYSIS [None]
